FAERS Safety Report 7772834-7 (Version None)
Quarter: 2011Q3

REPORT INFORMATION
  Report Type: 
  Country: None (occurrence: None)
  Receive Date: 20110922
  Receipt Date: 20101005
  Transmission Date: 20111222
  Serious: No
  Sender: FDA-Public Use
  Company Number: US-ASTRAZENECA-2010SE22741

PATIENT
  Age: 477 Month
  Sex: Male
  Weight: 108.9 kg

DRUGS (4)
  1. SEROQUEL [Suspect]
     Indication: SCHIZOAFFECTIVE DISORDER
     Route: 048
     Dates: start: 20060101, end: 20100401
  2. SEROQUEL [Suspect]
     Indication: SCHIZOPHRENIA
     Route: 048
     Dates: start: 20060101, end: 20100401
  3. SEROQUEL [Suspect]
     Route: 048
     Dates: start: 20100501
  4. SEROQUEL [Suspect]
     Route: 048
     Dates: start: 20100501

REACTIONS (6)
  - MALAISE [None]
  - HALLUCINATION [None]
  - DRUG DOSE OMISSION [None]
  - CHILLS [None]
  - OBSESSIVE THOUGHTS [None]
  - INSOMNIA [None]
